FAERS Safety Report 4469057-6 (Version None)
Quarter: 2004Q4

REPORT INFORMATION
  Report Type: 
  Country: None (occurrence: None)
  Receive Date: 20041001
  Receipt Date: 20040920
  Transmission Date: 20050328
  Serious: Yes (Hospitalization)
  Sender: FDA-Public Use
  Company Number: 2004234242FR

PATIENT
  Age: 79 Year
  Sex: Female

DRUGS (6)
  1. DELTASONE [Suspect]
     Dosage: 7 MG, UNK, ORAL
     Route: 048
     Dates: start: 20040220
  2. CORLIPROL(CELIPROLOL HYDROCHLORIDE) TABLET [Suspect]
     Dosage: 200 MG, UNK, ORAL
     Route: 048
  3. ISOKET(ISOSORBIDE DINITRATE) CAPSULE [Suspect]
     Dosage: 60 MG, UNK, ORAL
     Route: 048
  4. LOMEPRAL (OMEPRAZOLE) CAPSULE [Suspect]
     Dosage: 20 MG, UNK, ORAL
     Route: 048
     Dates: start: 20040220, end: 20040320
  5. ZOLPIDEM TARTRATE [Suspect]
     Dosage: 5 MG, UNK, ORAL
     Route: 048
  6. PLAQUENIL [Suspect]
     Dates: start: 20040220, end: 20040305

REACTIONS (12)
  - ANTINUCLEAR ANTIBODY POSITIVE [None]
  - CHEILITIS [None]
  - CHOLELITHIASIS [None]
  - CHOLESTASIS [None]
  - DERMATITIS BULLOUS [None]
  - DRUG INEFFECTIVE [None]
  - ENANTHEMA [None]
  - ERYTHEMA [None]
  - PETECHIAE [None]
  - RASH PAPULAR [None]
  - RASH PRURITIC [None]
  - TOXIC SKIN ERUPTION [None]
